FAERS Safety Report 8581659 (Version 2)
Quarter: 2012Q4

REPORT INFORMATION
  Report Type: 
  Country: US (occurrence: US)
  Receive Date: 20120525
  Receipt Date: 20121113
  Transmission Date: 20130627
  Serious: Yes (Other)
  Sender: FDA-Public Use
  Company Number: US-ASTRAZENECA-2012SE20708

PATIENT
  Age: 60 Year
  Sex: Male

DRUGS (6)
  1. PULMICORT FLEXHALER [Suspect]
     Route: 055
  2. RHINOCORT AQUA [Suspect]
     Route: 045
  3. SINGULAIR [Concomitant]
     Route: 048
  4. PROAIR [Concomitant]
     Route: 065
  5. GENERIC ZYRTEC - D [Concomitant]
     Dosage: 24 HR TABLET
     Route: 048
  6. GENERIC CLARITIN - D [Concomitant]
     Dosage: 24 HR TABLET
     Route: 048

REACTIONS (3)
  - Cataract [Unknown]
  - Cardiac murmur [Unknown]
  - Heart valve incompetence [Unknown]
